FAERS Safety Report 13565730 (Version 1)
Quarter: 2017Q2

REPORT INFORMATION
  Report Type: Other
  Country: GB (occurrence: US)
  Receive Date: 20170519
  Receipt Date: 20170519
  Transmission Date: 20170830
  Serious: Yes (Death, Life-Threatening, Other)
  Sender: FDA-Public Use
  Company Number: US-INTERNATIONAL MEDICATION SYSTEMS, LIMITED-2021023

PATIENT
  Age: 55 Year
  Sex: Male

DRUGS (3)
  1. ETOMIDATE. [Concomitant]
     Active Substance: ETOMIDATE
  2. SUXAMETHONIUM [Concomitant]
     Active Substance: SUCCINYLCHOLINE
  3. LIDOCAINE. [Suspect]
     Active Substance: LIDOCAINE
     Indication: ANAESTHESIA
     Route: 061

REACTIONS (2)
  - Death [Fatal]
  - Methaemoglobinaemia [Recovered/Resolved]
